FAERS Safety Report 20846061 (Version 1)
Quarter: 2022Q2

REPORT INFORMATION
  Report Type: Spontaneous
  Country: US (occurrence: US)
  Receive Date: 20220518
  Receipt Date: 20220518
  Transmission Date: 20220721
  Serious: No
  Sender: FDA-Public Use
  Company Number: US-PFIZER INC-202200126521

PATIENT
  Age: 38 Year
  Sex: Male
  Weight: 99.79 kg

DRUGS (2)
  1. SILDENAFIL CITRATE [Suspect]
     Active Substance: SILDENAFIL CITRATE
     Dosage: 100 MG
  2. SILDENAFIL CITRATE [Suspect]
     Active Substance: SILDENAFIL CITRATE
     Dosage: 100 MG

REACTIONS (5)
  - Drug ineffective [Unknown]
  - Nasal oedema [Unknown]
  - Facial discomfort [Unknown]
  - Visual impairment [Unknown]
  - Head discomfort [Unknown]
